FAERS Safety Report 6603047-X (Version None)
Quarter: 2010Q1

REPORT INFORMATION
  Report Type: 
  Country: None (occurrence: None)
  Receive Date: 20100226
  Receipt Date: 20100219
  Transmission Date: 20100710
  Serious: Yes (Death, Hospitalization)
  Sender: FDA-Public Use
  Company Number: US-ELI_LILLY_AND_COMPANY-US201002005937

PATIENT
  Age: 53 Year
  Sex: Male
  Weight: 47.193 kg

DRUGS (8)
  1. GEMCITABINE HCL [Suspect]
     Indication: TRANSITIONAL CELL CARCINOMA
     Dosage: 1600 MG, UNK
     Route: 042
     Dates: start: 20090403, end: 20090417
  2. CETUXIMAB [Suspect]
     Indication: TRANSITIONAL CELL CARCINOMA
     Dosage: 800 MG, UNK
     Route: 042
     Dates: start: 20090403, end: 20090417
  3. CISPLATIN [Suspect]
     Indication: TRANSITIONAL CELL CARCINOMA
     Dosage: 112 MG, UNK
     Route: 042
     Dates: start: 20090403, end: 20090403
  4. OXYCODONE WITH APAP [Concomitant]
     Indication: PAIN
     Dosage: UNK, AS NEEDED
     Route: 048
  5. PHENAZOPYRIDINE HCL TAB [Concomitant]
     Dosage: 200 MG, 3/D
     Route: 048
  6. IMODIUM [Concomitant]
     Indication: DIARRHOEA
     Dosage: UNK, DAILY (1/D)
     Route: 048
  7. LOMOTIL /00172302/ [Concomitant]
     Indication: DIARRHOEA
     Route: 048
  8. LAXATIVES [Concomitant]
     Indication: CONSTIPATION

REACTIONS (6)
  - ACUTE RESPIRATORY DISTRESS SYNDROME [None]
  - CONFUSIONAL STATE [None]
  - HYPONATRAEMIA [None]
  - MALIGNANT NEOPLASM PROGRESSION [None]
  - SEPSIS [None]
  - UROGENITAL FISTULA [None]
